FAERS Safety Report 23730702 (Version 2)
Quarter: 2024Q2

REPORT INFORMATION
  Report Type: Spontaneous
  Country: US (occurrence: US)
  Receive Date: 20240411
  Receipt Date: 20240424
  Transmission Date: 20240716
  Serious: Yes (Other)
  Sender: FDA-Public Use
  Company Number: US-FDC-2024USSPO00281

PATIENT
  Age: 54 Year
  Sex: Male
  Weight: 106.5 kg

DRUGS (1)
  1. CIPROFLOXACIN [Suspect]
     Active Substance: CIPROFLOXACIN
     Indication: Corneal abrasion
     Dosage: 1 TO 2 DROPS (GAP OF 02 HOURS FOR EACH DOSE)
     Route: 047
     Dates: start: 20240308, end: 20240308

REACTIONS (6)
  - Blindness [Not Recovered/Not Resolved]
  - Eye swelling [Recovered/Resolved]
  - Swelling of eyelid [Recovered/Resolved]
  - Eye discharge [Unknown]
  - Photophobia [Recovered/Resolved]
  - Dysgeusia [Recovered/Resolved]

NARRATIVE: CASE EVENT DATE: 20240308
